FAERS Safety Report 10751845 (Version 1)
Quarter: 2015Q1

REPORT INFORMATION
  Report Type: Spontaneous
  Country: FR (occurrence: FR)
  Receive Date: 20150130
  Receipt Date: 20150130
  Transmission Date: 20150721
  Serious: Yes (Hospitalization)
  Sender: FDA-Public Use
  Company Number: FR-PFIZER INC-2015038169

PATIENT
  Age: 53 Year
  Sex: Female

DRUGS (3)
  1. XEROQUEL LP [Suspect]
     Active Substance: QUETIAPINE FUMARATE
     Dosage: 2100 MG, SINGLE
     Route: 048
     Dates: start: 20141220, end: 20141220
  2. XANAX [Suspect]
     Active Substance: ALPRAZOLAM
     Dosage: 12 MG, SINGLE
     Route: 048
     Dates: start: 20141220, end: 20141220
  3. IMOVANE [Suspect]
     Active Substance: ZOPICLONE
     Dosage: 9 DF, SINGLE
     Route: 048
     Dates: start: 20141220, end: 20141220

REACTIONS (3)
  - Blood creatine phosphokinase increased [Recovered/Resolved]
  - Overdose [Recovered/Resolved]
  - Anticholinergic syndrome [Recovered/Resolved]

NARRATIVE: CASE EVENT DATE: 20141220
